FAERS Safety Report 13985162 (Version 1)
Quarter: 2017Q3

REPORT INFORMATION
  Report Type: Spontaneous
  Country: US (occurrence: US)
  Receive Date: 20170919
  Receipt Date: 20170919
  Transmission Date: 20171128
  Serious: No
  Sender: FDA-Public Use
  Company Number: US-BRISTOL-MYERS SQUIBB COMPANY-BMS-2017-083689

PATIENT
  Sex: Female

DRUGS (1)
  1. ABILIFY [Suspect]
     Active Substance: ARIPIPRAZOLE
     Indication: BIPOLAR DISORDER
     Route: 065

REACTIONS (14)
  - Irritability [Unknown]
  - Mania [Unknown]
  - Emotional disorder [Unknown]
  - Logorrhoea [Unknown]
  - Restlessness [Unknown]
  - Pain [Unknown]
  - Anger [Unknown]
  - Wrong technique in product usage process [Unknown]
  - Head discomfort [Unknown]
  - Drug ineffective [Unknown]
  - Dyskinesia [Unknown]
  - Tardive dyskinesia [Unknown]
  - Eating disorder [Unknown]
  - Depression [Unknown]
